FAERS Safety Report 7366991-4 (Version None)
Quarter: 2011Q1

REPORT INFORMATION
  Report Type: 
  Country: None (occurrence: None)
  Receive Date: 20110322
  Receipt Date: 20110317
  Transmission Date: 20110831
  Serious: Yes (Hospitalization, Other)
  Sender: FDA-Public Use
  Company Number: US-PFIZER INC-2011058603

PATIENT
  Sex: Female
  Weight: 96.145 kg

DRUGS (6)
  1. NITROGLYCERIN [Concomitant]
     Indication: CARDIAC DISORDER
     Dosage: UNK
     Route: 060
  2. TAMBOCOR [Concomitant]
     Indication: CARDIAC DISORDER
     Dosage: 50 MG, 2X/DAY
     Route: 048
  3. PLENDIL [Concomitant]
     Indication: CARDIAC DISORDER
     Dosage: 2.5 MG, 1X/DAY
     Route: 048
  4. VERAPAMIL HCL [Suspect]
     Indication: CARDIAC DISORDER
     Dosage: 240 MG, DAILY
  5. LANOXIN [Concomitant]
     Indication: CARDIAC DISORDER
     Dosage: 2.5 MG, 1X/DAY
  6. TENORMIN [Concomitant]
     Indication: CARDIAC DISORDER
     Dosage: 0.5 DF, 1X/DAY
     Route: 048

REACTIONS (6)
  - ANGINA PECTORIS [None]
  - VENTRICULAR EXTRASYSTOLES [None]
  - ANOMALOUS ATRIOVENTRICULAR EXCITATION [None]
  - HYPERSENSITIVITY [None]
  - CARDIAC FAILURE CONGESTIVE [None]
  - BRADYCARDIA [None]
